FAERS Safety Report 6138773-2 (Version None)
Quarter: 2009Q1

REPORT INFORMATION
  Report Type: 
  Country: None (occurrence: None)
  Receive Date: 20090327
  Receipt Date: 20090312
  Transmission Date: 20090719
  Serious: Yes (Life-Threatening)
  Sender: FDA-Public Use
  Company Number: 2009S1004776

PATIENT
  Age: 78 Year
  Sex: Female
  Weight: 80 kg

DRUGS (9)
  1. SPIRONOLACTONE [Suspect]
     Indication: HYPERTENSION
     Dosage: 50 MG;DAILY;ORAL
     Route: 048
     Dates: start: 20080730, end: 20080818
  2. DIOVAN HCT [Suspect]
     Indication: HYPERTENSION
     Dosage: 1 DF;DAILY;ORAL
     Route: 048
     Dates: start: 20020101, end: 20080818
  3. DOXAZOSIN MESYLATE [Suspect]
     Indication: HYPERTENSION
     Dosage: 4 MG;DAILY;ORAL
     Route: 048
     Dates: start: 20050101, end: 20080818
  4. TORSEMIDE [Suspect]
     Indication: HYPERTENSION
     Dosage: 5 MG;DAILY;ORAL
     Route: 048
     Dates: start: 20020101
  5. EZETIMIBE W/SIMVASTATIN [Concomitant]
  6. AMLODIPINE [Concomitant]
  7. DIGITOXIN TAB [Concomitant]
  8. METOPROLOL [Concomitant]
  9. PANTOZOL [Concomitant]

REACTIONS (1)
  - RENAL FAILURE ACUTE [None]
